FAERS Safety Report 6779795-8 (Version None)
Quarter: 2010Q2

REPORT INFORMATION
  Report Type: 
  Country: None (occurrence: None)
  Receive Date: 20100618
  Receipt Date: 20100609
  Transmission Date: 20101027
  Serious: Yes (Hospitalization)
  Sender: FDA-Public Use
  Company Number: DE-JNJFOC-20100508856

PATIENT
  Age: 53 Year
  Sex: Female
  Weight: 111 kg

DRUGS (11)
  1. REMICADE [Suspect]
     Indication: PSORIATIC ARTHROPATHY
     Route: 041
  2. REMICADE [Suspect]
     Route: 041
  3. METHOTREXATE [Suspect]
     Indication: PSORIATIC ARTHROPATHY
     Route: 058
  4. METHOTREXATE [Suspect]
     Route: 058
  5. METFORMIN [Concomitant]
     Indication: DIABETES MELLITUS
  6. IBUPROFEN [Concomitant]
     Indication: ARTHRITIS
     Dosage: DAILY DOSE REPORTED AS 400-800MG
  7. SIMVASTATIN [Concomitant]
     Indication: HYPERLIPIDAEMIA
  8. OMEPRAZOLE [Concomitant]
     Indication: GASTRITIS
  9. TORSEMIDE [Concomitant]
     Indication: HYPERTENSION
  10. VALSARTAN [Concomitant]
     Indication: HYPERTENSION
  11. HYDROCHLOROTHIAZIDE [Concomitant]
     Indication: HYPERTENSION

REACTIONS (2)
  - DISSEMINATED TUBERCULOSIS [None]
  - LEUKOPENIA [None]
